FAERS Safety Report 14733923 (Version 5)
Quarter: 2020Q1

REPORT INFORMATION
  Report Type: Spontaneous
  Country: US (occurrence: US)
  Receive Date: 20180409
  Receipt Date: 20200123
  Transmission Date: 20200409
  Serious: Yes (Other)
  Sender: FDA-Public Use
  Company Number: US-GLAXOSMITHKLINE-US2018GSK059962

PATIENT
  Sex: Female

DRUGS (2)
  1. PREVACID [Suspect]
     Active Substance: LANSOPRAZOLE
     Indication: GASTROOESOPHAGEAL REFLUX DISEASE
     Dosage: 30 MG, QD
     Route: 065
  2. PREVACID [Suspect]
     Active Substance: LANSOPRAZOLE
     Indication: GASTROOESOPHAGEAL REFLUX DISEASE
     Dosage: 15 MG, QD
     Route: 065

REACTIONS (9)
  - Chronic kidney disease [Unknown]
  - Renal impairment [Unknown]
  - Nephrogenic anaemia [Unknown]
  - Hypertensive nephropathy [Unknown]
  - Renal injury [Unknown]
  - Acute kidney injury [Unknown]
  - Renal failure [Unknown]
  - Renal atrophy [Unknown]
  - Renal cyst [Unknown]
